FAERS Safety Report 22659280 (Version 1)
Quarter: 2023Q2

REPORT INFORMATION
  Report Type: Spontaneous
  Country: US (occurrence: None)
  Receive Date: 20230630
  Receipt Date: 20230630
  Transmission Date: 20230722
  Serious: Yes (Hospitalization)
  Sender: FDA-Public Use
  Company Number: None

PATIENT
  Age: 66 Year
  Sex: Male

DRUGS (12)
  1. CAPECITABINE [Suspect]
     Active Substance: CAPECITABINE
     Indication: Colon cancer
     Dosage: FREQUENCY : TWICE A DAY;?
     Route: 048
  2. XIIDRA [Concomitant]
  3. PRILOSEC [Concomitant]
     Active Substance: OMEPRAZOLE MAGNESIUM
  4. PLAVIX [Concomitant]
     Active Substance: CLOPIDOGREL BISULFATE
  5. NAPROXEN [Concomitant]
     Active Substance: NAPROXEN
  6. METOPROLOL [Concomitant]
     Active Substance: METOPROLOL
  7. LIVALO [Concomitant]
     Active Substance: PITAVASTATIN CALCIUM
  8. EZETIMIBE [Concomitant]
     Active Substance: EZETIMIBE
  9. CYCLOBENZAPRINE [Concomitant]
     Active Substance: CYCLOBENZAPRINE
  10. BRETRI [Concomitant]
  11. ASPIRIN [Concomitant]
     Active Substance: ASPIRIN
  12. ALBUTEROL [Concomitant]

REACTIONS (1)
  - Pulmonary embolism [None]

NARRATIVE: CASE EVENT DATE: 20210625
